FAERS Safety Report 6440801-1 (Version None)
Quarter: 2009Q4

REPORT INFORMATION
  Report Type: 
  Country: None (occurrence: None)
  Receive Date: 20091116
  Receipt Date: 20091005
  Transmission Date: 20100525
  Serious: Yes (Hospitalization)
  Sender: FDA-Public Use
  Company Number: US-ELI_LILLY_AND_COMPANY-US200908000502

PATIENT
  Sex: Male
  Weight: 122.5 kg

DRUGS (1)
  1. OLANZAPINE + FLUOXETINE HCL [Suspect]
     Indication: MAJOR DEPRESSION
     Dosage: UNK, UNK
     Route: 048
     Dates: start: 20090604, end: 20090731

REACTIONS (1)
  - SUICIDE ATTEMPT [None]
